FAERS Safety Report 6522447-X (Version None)
Quarter: 2009Q4

REPORT INFORMATION
  Report Type: 
  Country: None (occurrence: None)
  Receive Date: 20091230
  Receipt Date: 20091218
  Transmission Date: 20100525
  Serious: Yes (Other)
  Sender: FDA-Public Use
  Company Number: GB-JNJFOC-20091206809

PATIENT
  Age: 9 Year
  Sex: Female

DRUGS (2)
  1. TOPIRAMATE [Suspect]
     Indication: CONVULSION
     Route: 065
  2. TOPIRAMATE [Suspect]
     Dosage: AT NIGHT
     Route: 065

REACTIONS (1)
  - ALLODYNIA [None]
